FAERS Safety Report 4345316-2 (Version None)
Quarter: 2004Q2

REPORT INFORMATION
  Report Type: 
  Country: None (occurrence: None)
  Receive Date: 20040423
  Receipt Date: 20040413
  Transmission Date: 20050107
  Serious: Yes (Other)
  Sender: FDA-Public Use
  Company Number: FR-GLAXOSMITHKLINE-B0330184A

PATIENT
  Age: 76 Year
  Sex: Female
  Weight: 100 kg

DRUGS (3)
  1. AVANDIA [Suspect]
     Dosage: 4MG PER DAY
     Route: 048
     Dates: start: 20030415, end: 20030430
  2. AMAREL [Concomitant]
     Dosage: 4MG PER DAY
     Route: 048
  3. RENITEC [Concomitant]
     Dosage: 20MG PER DAY
     Route: 048

REACTIONS (4)
  - ANXIETY [None]
  - MALAISE [None]
  - NAUSEA [None]
  - SENSE OF OPPRESSION [None]
